FAERS Safety Report 25978513 (Version 1)
Quarter: 2025Q4

REPORT INFORMATION
  Report Type: Spontaneous
  Country: US (occurrence: US)
  Receive Date: 20251030
  Receipt Date: 20251030
  Transmission Date: 20260117
  Serious: Yes (Hospitalization, Other)
  Sender: SPECGX
  Company Number: US-SPECGX-T202501660

PATIENT
  Age: 31 Year
  Sex: Female

DRUGS (47)
  1. METHADONE [Suspect]
     Active Substance: METHADONE HYDROCHLORIDE
     Indication: Drug withdrawal maintenance therapy
     Dosage: 40 MILLIGRAM
     Route: 048
  2. METHADONE [Suspect]
     Active Substance: METHADONE HYDROCHLORIDE
     Dosage: 150 MILLIGRAM, QD
     Route: 048
  3. METHADONE [Suspect]
     Active Substance: METHADONE HYDROCHLORIDE
     Dosage: 150 MILLIGRAM, TID
     Route: 048
  4. METHADONE [Suspect]
     Active Substance: METHADONE HYDROCHLORIDE
     Dosage: 50 MILLIGRAM, TID (ON HOSPITAL DAY 4)
     Route: 048
  5. METHADONE [Suspect]
     Active Substance: METHADONE HYDROCHLORIDE
     Dosage: 50 MILLIGRAM, QD (ON DAY 5)
     Route: 048
  6. METHADONE [Suspect]
     Active Substance: METHADONE HYDROCHLORIDE
     Dosage: 40 MILLIGRAM, BID (ON DAY 5)
     Route: 048
  7. METHADONE [Suspect]
     Active Substance: METHADONE HYDROCHLORIDE
     Dosage: 40 MILLIGRAM, BID (ON DAY 6)
     Route: 048
  8. METHADONE [Suspect]
     Active Substance: METHADONE HYDROCHLORIDE
     Dosage: 30 MILLIGRAM, QD (ON DAY 6)
     Route: 048
  9. METHADONE [Suspect]
     Active Substance: METHADONE HYDROCHLORIDE
     Dosage: 30 MILLIGRAM, TID (ON DAY 7)
     Route: 048
  10. METHADONE [Suspect]
     Active Substance: METHADONE HYDROCHLORIDE
     Dosage: 20 MILLIGRAM, TID (ON DAY 8)
     Route: 048
  11. METHADONE [Suspect]
     Active Substance: METHADONE HYDROCHLORIDE
     Dosage: 10 MILLIGRAM, TID (ON DAY 9)
     Route: 048
  12. OXYCODONE [Suspect]
     Active Substance: OXYCODONE
     Indication: Product used for unknown indication
     Dosage: 25 MILLIGRAM (ON DAY 10)
     Route: 065
  13. OXYCODONE [Suspect]
     Active Substance: OXYCODONE
     Dosage: 50 MILLIGRAM (ON DAY 11)
     Route: 065
  14. OXYCODONE [Suspect]
     Active Substance: OXYCODONE
     Dosage: 60 MILLIGRAM (ON DAY 12)
     Route: 065
  15. OXYCODONE [Suspect]
     Active Substance: OXYCODONE
     Dosage: 40 MILLIGRAM (ON DAY 13)
     Route: 065
  16. BUPRENORPHINE [Suspect]
     Active Substance: BUPRENORPHINE
     Indication: Drug withdrawal maintenance therapy
     Dosage: 20 MCG/H (ON DAY 5)
     Route: 062
  17. BUPRENORPHINE [Suspect]
     Active Substance: BUPRENORPHINE
     Dosage: 40 MCG/H (ON DAY 6)
     Route: 062
  18. BUPRENORPHINE [Suspect]
     Active Substance: BUPRENORPHINE
     Dosage: 40 MCG/H (ON DAY 7)
     Route: 062
  19. BUPRENORPHINE [Suspect]
     Active Substance: BUPRENORPHINE
     Dosage: 40 MCG/H (ON DAY 8)
     Route: 062
  20. BUPRENORPHINE [Suspect]
     Active Substance: BUPRENORPHINE
     Dosage: 40 MCG/H (ON DAY 9)
     Route: 062
  21. BUPRENORPHINE [Suspect]
     Active Substance: BUPRENORPHINE
     Dosage: 40 MCG/H (ON DAY 10)
     Route: 062
  22. FENTANYL [Suspect]
     Active Substance: FENTANYL
     Indication: Product used for unknown indication
     Dosage: UNK (DAILY)
     Route: 045
  23. FENTANYL [Suspect]
     Active Substance: FENTANYL
     Dosage: UNK (APPROXIMATELY SEVEN TIMES PER DAY)
     Route: 045
  24. FENTANYL [Suspect]
     Active Substance: FENTANYL
     Dosage: 100 MICROGRAM (ON DAY 1)
     Route: 041
  25. FENTANYL [Suspect]
     Active Substance: FENTANYL
     Dosage: 175-300 MCG/H (ON DAY 2)
     Route: 041
  26. FENTANYL [Suspect]
     Active Substance: FENTANYL
     Dosage: 225-350 MCG/H (ON DAY 3))
     Route: 041
  27. HYDROMORPHONE [Suspect]
     Active Substance: HYDROMORPHONE
     Indication: Postoperative analgesia
     Dosage: 5 MILLIGRAM (ON DAY 3)
     Route: 042
  28. HYDROMORPHONE [Suspect]
     Active Substance: HYDROMORPHONE
     Dosage: 10.95 MILLIGRAM (PATIENT-CONTROLLED ANALGESIA (PCA); ON DAY 4)
     Route: 042
  29. HYDROMORPHONE [Suspect]
     Active Substance: HYDROMORPHONE
     Dosage: 25.3 MILLIGRAM (PATIENT-CONTROLLED ANALGESIA (PCA); ON DAY 5)
     Route: 042
  30. HYDROMORPHONE [Suspect]
     Active Substance: HYDROMORPHONE
     Dosage: 39 MILLIGRAM (PATIENT-CONTROLLED ANALGESIA (PCA); ON DAY 6)
     Route: 042
  31. HYDROMORPHONE [Suspect]
     Active Substance: HYDROMORPHONE
     Dosage: 75.5 MILLIGRAM (PATIENT-CONTROLLED ANALGESIA (PCA); ON DAY 7)
     Route: 042
  32. HYDROMORPHONE [Suspect]
     Active Substance: HYDROMORPHONE
     Dosage: 36.55 MILLIGRAM (PATIENT-CONTROLLED ANALGESIA (PCA); ON DAY 8)
     Route: 042
  33. HYDROMORPHONE [Suspect]
     Active Substance: HYDROMORPHONE
     Dosage: 35.4 MILLIGRAM (PATIENT-CONTROLLED ANALGESIA (PCA); ON DAY 9)
     Route: 042
  34. HYDROMORPHONE [Suspect]
     Active Substance: HYDROMORPHONE
     Dosage: 9 MILLIGRAM (PATIENT-CONTROLLED ANALGESIA (PCA); ON DAY 10)
     Route: 042
  35. HYDROMORPHONE [Suspect]
     Active Substance: HYDROMORPHONE
     Dosage: 0.5 MILLIGRAM (ON DAY 11)
     Route: 042
  36. COCAINE [Suspect]
     Active Substance: COCAINE
     Indication: Product used for unknown indication
     Dosage: UNK (APPROXIMATELY ONCE EVERY 2 WEEKS)
     Route: 045
  37. CANNABIS SATIVA SUBSP. INDICA TOP [Suspect]
     Active Substance: CANNABIS SATIVA SUBSP. INDICA TOP
     Indication: Product used for unknown indication
     Dosage: UNK (DAILY CANNABIS SMOKING)
  38. BUPRENORPHINE [Suspect]
     Active Substance: BUPRENORPHINE
     Indication: Drug withdrawal maintenance therapy
     Dosage: 1 MILLIGRAM, TID (ON DAY 7)
     Route: 060
  39. BUPRENORPHINE [Suspect]
     Active Substance: BUPRENORPHINE
     Dosage: 2 MILLIGRAM, TID (ON DAY 8)
     Route: 060
  40. BUPRENORPHINE [Suspect]
     Active Substance: BUPRENORPHINE
     Dosage: 3 MILLIGRAM, TID (ON DAY 9)
     Route: 060
  41. BUPRENORPHINE [Suspect]
     Active Substance: BUPRENORPHINE
     Dosage: 4 MILLIGRAM, TID (ON DAY 10)
     Route: 060
  42. BUPRENORPHINE [Suspect]
     Active Substance: BUPRENORPHINE
     Dosage: 4 MILLIGRAM, TID (ON DAY 11)
     Route: 060
  43. BUPRENORPHINE [Suspect]
     Active Substance: BUPRENORPHINE
     Dosage: 4 MILLIGRAM, QID (ON DAY 12)
     Route: 060
  44. BUPRENORPHINE [Suspect]
     Active Substance: BUPRENORPHINE
     Dosage: 4 MILLIGRAM, BID (ON DAY 13)
     Route: 060
  45. PROPOFOL [Concomitant]
     Active Substance: PROPOFOL
     Indication: Sedative therapy
     Dosage: UNK
     Route: 065
  46. DEXMEDETOMIDINE [Concomitant]
     Active Substance: DEXMEDETOMIDINE
     Indication: Sedative therapy
     Dosage: UNK
     Route: 065
  47. FENTANYL [Concomitant]
     Active Substance: FENTANYL
     Indication: Sedative therapy
     Dosage: UNK
     Route: 065

REACTIONS (13)
  - Colitis ischaemic [Unknown]
  - Intestinal perforation [Unknown]
  - Cardio-respiratory arrest [Unknown]
  - Constipation [Unknown]
  - Electrocardiogram QT prolonged [Unknown]
  - Ventricular tachycardia [Unknown]
  - Laparotomy [Unknown]
  - Colectomy [Unknown]
  - Colostomy [Unknown]
  - Endotracheal intubation [Unknown]
  - Substance use [Unknown]
  - Drug dependence [Unknown]
  - Drug withdrawal syndrome [Unknown]
